FAERS Safety Report 14082566 (Version 2)
Quarter: 2017Q4

REPORT INFORMATION
  Report Type: Report from Study
  Country: MX (occurrence: MX)
  Receive Date: 20171013
  Receipt Date: 20171016
  Transmission Date: 20180321
  Serious: Yes (Life-Threatening, Other)
  Sender: FDA-Public Use
  Company Number: MX-UCBSA-2017040770

PATIENT
  Age: 16 Year
  Sex: Male
  Weight: 49 kg

DRUGS (7)
  1. BRIVARACETAM PEP [Suspect]
     Active Substance: BRIVARACETAM
     Indication: EPILEPSY
     Dosage: 25 MG, 2X/DAY (BID)
     Route: 048
     Dates: start: 20170817, end: 20170824
  2. VALPROATE MAGNESIUM [Concomitant]
     Active Substance: VALPROATE MAGNESIUM
     Indication: EPILEPSY
     Dosage: 400 MG, 3X/DAY (TID)
     Route: 048
  3. OLANZAPINE. [Concomitant]
     Active Substance: OLANZAPINE
     Indication: IRRITABILITY
     Dosage: 7.5 MG, ONCE DAILY (QD)
     Route: 048
     Dates: start: 20170912
  4. ETHAMBUTOL W/ISONIA./PYRAZ./RIFAMP./STREPTOM. [Concomitant]
     Indication: PULMONARY TUBERCULOSIS
     Dosage: 2 DF, UNK
     Route: 048
     Dates: start: 20170511
  5. CLONAZEPAM. [Concomitant]
     Active Substance: CLONAZEPAM
     Indication: EPILEPSY
     Dosage: 2.5 MG, 2X/DAY (BID)
     Route: 048
     Dates: start: 20170721
  6. PYRIDOXINE [Concomitant]
     Active Substance: PYRIDOXINE
     Indication: TUBERCULOSIS
     Dosage: 50 MG, ONCE DAILY (QD)
     Route: 048
     Dates: start: 20170511
  7. PHENYTOIN. [Concomitant]
     Active Substance: PHENYTOIN
     Indication: EPILEPSY
     Dosage: 100 MG, 2X/DAY (BID)
     Route: 048
     Dates: start: 20170329

REACTIONS (1)
  - Hepatic enzyme increased [Recovering/Resolving]

NARRATIVE: CASE EVENT DATE: 20171003
